FAERS Safety Report 25169397 (Version 3)
Quarter: 2025Q2

REPORT INFORMATION
  Report Type: Spontaneous
  Country: US (occurrence: US)
  Receive Date: 20250407
  Receipt Date: 20250516
  Transmission Date: 20250716
  Serious: Yes (Disabling, Other)
  Sender: PFIZER
  Company Number: US-PFIZER INC-202500072564

PATIENT
  Age: 75 Year
  Sex: Male
  Weight: 52.154 kg

DRUGS (7)
  1. PAXLOVID [Suspect]
     Active Substance: NIRMATRELVIR\RITONAVIR
     Indication: COVID-19 treatment
     Dosage: UNK, 2X/DAY
     Route: 048
     Dates: start: 20250329, end: 20250403
  2. METFORMIN [Concomitant]
     Active Substance: METFORMIN HYDROCHLORIDE
     Dates: start: 20250101, end: 20250329
  3. PRAVASTATIN [Concomitant]
     Active Substance: PRAVASTATIN
     Indication: Lipids decreased
     Dates: start: 20250101, end: 20250329
  4. PRAVASTATIN [Concomitant]
     Active Substance: PRAVASTATIN
     Dosage: 20 MG, DAILY
  5. PEPCID [Concomitant]
     Active Substance: FAMOTIDINE
     Dates: start: 20250101, end: 20250329
  6. ZETIA [Concomitant]
     Active Substance: EZETIMIBE
     Indication: Lipids decreased
     Dates: start: 20250101, end: 20250329
  7. ZETIA [Concomitant]
     Active Substance: EZETIMIBE
     Dosage: 10 MG, DAILY

REACTIONS (1)
  - Neuropathy peripheral [Not Recovered/Not Resolved]

NARRATIVE: CASE EVENT DATE: 20250331
